FAERS Safety Report 7116220-1 (Version None)
Quarter: 2010Q4

REPORT INFORMATION
  Report Type: 
  Country: None (occurrence: None)
  Receive Date: 20101115
  Receipt Date: 20101029
  Transmission Date: 20110411
  Serious: Yes (Death)
  Sender: FDA-Public Use
  Company Number: 2010004675

PATIENT
  Age: 42 Year
  Sex: Male

DRUGS (1)
  1. TARCEVA [Suspect]
     Indication: PRODUCT USED FOR UNKNOWN INDICATION
     Dosage: (150 MG, DAILY), ORAL
     Route: 048
     Dates: start: 20100422

REACTIONS (2)
  - MENINGITIS BACTERIAL [None]
  - NON-SMALL CELL LUNG CANCER METASTATIC [None]
